FAERS Safety Report 8842520 (Version 1)
Quarter: 2012Q4

REPORT INFORMATION
  Report Type: Report from Study
  Country: GB (occurrence: GB)
  Receive Date: 20121016
  Receipt Date: 20121016
  Transmission Date: 20130627
  Serious: Yes (Hospitalization, Other)
  Sender: FDA-Public Use
  Company Number: GB-BAXTER-2012BAX019365

PATIENT
  Age: 9 Year
  Sex: Female
  Weight: 27.5 kg

DRUGS (39)
  1. HOLOXAN [Suspect]
     Indication: SARCOMA METASTATIC
     Route: 041
     Dates: start: 20100331, end: 20100401
  2. HOLOXAN [Suspect]
     Route: 041
     Dates: start: 20100421, end: 20100505
  3. HOLOXAN [Suspect]
     Route: 041
     Dates: start: 20100917, end: 20100917
  4. UROMITEXAN [Suspect]
     Indication: SARCOMA METASTATIC
     Route: 041
     Dates: start: 20100421, end: 20100505
  5. UROMITEXAN [Suspect]
     Route: 041
     Dates: start: 20100331, end: 20100401
  6. UROMITEXAN [Suspect]
     Route: 041
     Dates: start: 20100917, end: 20100918
  7. VINCRISTINE [Suspect]
     Indication: SARCOMA METASTATIC
     Route: 040
     Dates: start: 20100331, end: 20100401
  8. VINCRISTINE [Suspect]
     Route: 040
     Dates: start: 20100421, end: 20100505
  9. VINCRISTINE [Suspect]
     Route: 040
     Dates: start: 20100917, end: 20100917
  10. ACTINOMYCIN D [Suspect]
     Indication: SARCOMA METASTATIC
     Route: 040
     Dates: start: 20100331, end: 20100401
  11. ACTINOMYCIN D [Suspect]
     Route: 040
     Dates: start: 20100421, end: 20100505
  12. ACTINOMYCIN D [Suspect]
     Route: 040
     Dates: start: 20100917, end: 20100917
  13. DOXORUBICIN [Suspect]
     Indication: SARCOMA METASTATIC
     Route: 042
     Dates: start: 20100331, end: 20100401
  14. DOXORUBICIN [Suspect]
     Route: 042
     Dates: start: 20100421, end: 20100505
  15. LORAZEPAM [Concomitant]
     Indication: DRUG USE FOR UNKNOWN INDICATION
     Route: 065
     Dates: start: 20100325, end: 20100331
  16. SENNA [Concomitant]
     Indication: DRUG USE FOR UNKNOWN INDICATION
     Dosage: 1 DF
     Route: 065
     Dates: start: 20100329
  17. SCOPOLAMINE HYDROBROMIDE [Concomitant]
     Indication: DRUG USE FOR UNKNOWN INDICATION
     Dosage: 1 PATCH
     Route: 065
     Dates: start: 20100326, end: 20100410
  18. PARACETAMOL [Concomitant]
     Indication: DRUG USE FOR UNKNOWN INDICATION
     Route: 065
     Dates: start: 20100322, end: 20100416
  19. PARACETAMOL [Concomitant]
     Route: 065
     Dates: start: 20100506, end: 20100514
  20. CODEINE PHOSPHATE [Concomitant]
     Indication: DRUG USE FOR UNKNOWN INDICATION
     Route: 065
     Dates: start: 20100323, end: 20100410
  21. METOCLOPRAMIDE [Concomitant]
     Indication: DRUG USE FOR UNKNOWN INDICATION
     Route: 065
     Dates: start: 20100325, end: 20100331
  22. METOCLOPRAMIDE [Concomitant]
     Route: 065
     Dates: start: 20100421, end: 20100513
  23. METOCLOPRAMIDE [Concomitant]
     Route: 065
     Dates: start: 20100917, end: 20100920
  24. RANITIDINE [Concomitant]
     Indication: DRUG USE FOR UNKNOWN INDICATION
     Route: 065
     Dates: start: 20100418
  25. CO-TRIMAZOLE [Concomitant]
     Indication: DRUG USE FOR UNKNOWN INDICATION
     Route: 065
     Dates: start: 2010
  26. CO-TRIMAZOLE [Concomitant]
     Route: 065
     Dates: start: 2010
  27. ONDANSETRON [Concomitant]
     Indication: DRUG USE FOR UNKNOWN INDICATION
     Route: 065
     Dates: start: 20100917, end: 20100920
  28. ONDANSETRON [Concomitant]
     Route: 065
     Dates: start: 20100331, end: 20100421
  29. ONDANSETRON [Concomitant]
     Route: 065
     Dates: start: 20100421
  30. ONDANSETRON [Concomitant]
     Route: 065
     Dates: start: 20100506, end: 20100509
  31. DOCUSATE SODIUM [Concomitant]
     Indication: DRUG USE FOR UNKNOWN INDICATION
     Route: 065
  32. SALBUTAMOL [Concomitant]
     Indication: DRUG USE FOR UNKNOWN INDICATION
     Dosage: 10 PUFFS
     Dates: start: 20100917
  33. LEVOMEPROMAZIN [Concomitant]
     Indication: DRUG USE FOR UNKNOWN INDICATION
     Route: 065
     Dates: start: 20100917, end: 20100920
  34. LEVOMEPROMAZIN [Concomitant]
     Route: 065
     Dates: start: 20100506, end: 20100513
  35. LEVOMEPROMAZIN [Concomitant]
     Route: 065
     Dates: start: 20100421
  36. DEXAMETHASONE [Concomitant]
     Indication: DRUG USE FOR UNKNOWN INDICATION
     Route: 065
     Dates: start: 20100331, end: 20100405
  37. DIHYDROCODEINE BITARTRATE [Concomitant]
     Indication: DRUG USE FOR UNKNOWN INDICATION
     Route: 065
     Dates: start: 20100507, end: 20100509
  38. DIHYDROCODEINE BITARTRATE [Concomitant]
     Route: 065
     Dates: start: 20100506
  39. BUSCOPAN [Concomitant]
     Indication: DRUG USE FOR UNKNOWN INDICATION
     Route: 065
     Dates: start: 20100510

REACTIONS (4)
  - Weight decreased [Recovered/Resolved]
  - Febrile neutropenia [Recovered/Resolved]
  - Device related infection [Recovered/Resolved]
  - Pyrexia [Recovered/Resolved]
